FAERS Safety Report 7220633-7 (Version None)
Quarter: 2011Q1

REPORT INFORMATION
  Report Type: 
  Country: None (occurrence: None)
  Receive Date: 20110111
  Receipt Date: 20110108
  Transmission Date: 20110831
  Serious: Yes (Hospitalization)
  Sender: FDA-Public Use
  Company Number: US-B.I. PHARMACEUTICALS,INC./RIDGEFIELD-2011-BP-00588BP

PATIENT

DRUGS (1)
  1. PRADAXA [Suspect]

REACTIONS (5)
  - OEDEMA [None]
  - POOR VENOUS ACCESS [None]
  - RENAL FAILURE [None]
  - ILL-DEFINED DISORDER [None]
  - URINARY TRACT INFECTION [None]
